FAERS Safety Report 13086668 (Version 9)
Quarter: 2020Q1

REPORT INFORMATION
  Report Type: Spontaneous
  Country: US (occurrence: US)
  Receive Date: 20170104
  Receipt Date: 20200121
  Transmission Date: 20200409
  Serious: Yes (Hospitalization, Other)
  Sender: FDA-Public Use
  Company Number: US-BIOMARINAP-US-2016-112277

PATIENT
  Age: 10 Month
  Sex: Female

DRUGS (6)
  1. CEFTRIAXONE SODIUM. [Suspect]
     Active Substance: CEFTRIAXONE SODIUM
     Indication: PRODUCT USED FOR UNKNOWN INDICATION
     Route: 065
  2. ALDURAZYME [Suspect]
     Active Substance: LARONIDASE
     Dosage: 5.8 MG, QW
     Route: 041
     Dates: start: 2017
  3. ALDURAZYME [Suspect]
     Active Substance: LARONIDASE
     Dosage: 5.8 MG, QW
     Route: 041
     Dates: start: 2017
  4. ALDURAZYME [Suspect]
     Active Substance: LARONIDASE
     Indication: MUCOPOLYSACCHARIDOSIS I
     Dosage: 8.7 MILLIGRAM, QW
     Route: 041
     Dates: start: 20161219, end: 2017
  5. ALDURAZYME [Suspect]
     Active Substance: LARONIDASE
     Dosage: 5.8 MG, QW
     Route: 041
     Dates: start: 201707
  6. ALDURAZYME [Suspect]
     Active Substance: LARONIDASE
     Dosage: 8.7 MILLIGRAM, QW
     Route: 041
     Dates: start: 20170111

REACTIONS (10)
  - Vomiting [Unknown]
  - Pyrexia [Unknown]
  - Haematochezia [Unknown]
  - Catheter site thrombosis [Unknown]
  - Hospitalisation [Recovering/Resolving]
  - Ear tube insertion [Unknown]
  - Drug eruption [Unknown]
  - Central venous catheterisation [Unknown]
  - Gastrointestinal tube insertion [Unknown]
  - Lumbar puncture [Unknown]

NARRATIVE: CASE EVENT DATE: 201612
